FAERS Safety Report 7310181-8 (Version None)
Quarter: 2011Q1

REPORT INFORMATION
  Report Type: 
  Country: None (occurrence: None)
  Receive Date: 20110224
  Receipt Date: 20110215
  Transmission Date: 20110831
  Serious: No
  Sender: FDA-Public Use
  Company Number: US-PFIZER INC-2010138275

PATIENT
  Sex: Female

DRUGS (1)
  1. ESTRING [Suspect]
     Indication: MENOPAUSE
     Dosage: 2/90 DAY RING, Q3MO
     Route: 067

REACTIONS (2)
  - VULVOVAGINAL DISCOMFORT [None]
  - VAGINAL HAEMORRHAGE [None]
